FAERS Safety Report 18944561 (Version 7)
Quarter: 2021Q1

REPORT INFORMATION
  Report Type: Report from Study
  Country: BE (occurrence: BE)
  Receive Date: 20210226
  Receipt Date: 20210331
  Transmission Date: 20210420
  Serious: Yes (Death, Hospitalization)
  Sender: FDA-Public Use
  Company Number: BE-ROCHE-2775147

PATIENT
  Age: 78 Year
  Sex: Male
  Weight: 92 kg

DRUGS (23)
  1. TAZOCIN [Concomitant]
     Active Substance: PIPERACILLIN SODIUM\TAZOBACTAM SODIUM
     Indication: PNEUMONIA ASPIRATION
     Route: 042
     Dates: start: 20210220, end: 20210228
  2. LASIX [Concomitant]
     Active Substance: FUROSEMIDE
     Indication: FLUID OVERLOAD
     Route: 048
     Dates: start: 20210227, end: 20210302
  3. SELOKEN [Concomitant]
     Active Substance: METOPROLOL
     Route: 042
     Dates: start: 20210221, end: 20210225
  4. PLACEBO [Suspect]
     Active Substance: UNSPECIFIED INGREDIENT
     Indication: SMALL CELL LUNG CANCER EXTENSIVE STAGE
     Dosage: DATE OF MOST RECENT DOSE PRIOR TO AE/SAE ONSET: 16/FEB/2021
     Route: 042
     Dates: start: 20201229
  5. ATEZOLIZUMAB. [Suspect]
     Active Substance: ATEZOLIZUMAB
     Indication: SMALL CELL LUNG CANCER EXTENSIVE STAGE
     Dosage: DATE OF MOST RECENT DOSE PRIOR TO AE/SAE ONSET: 16/FEB/2021 WAS 1200 MG.
     Route: 041
     Dates: start: 20201229
  6. ETOPOSIDE. [Suspect]
     Active Substance: ETOPOSIDE
     Indication: SMALL CELL LUNG CANCER EXTENSIVE STAGE
     Dosage: DATE OF MOST RECENT DOSE PRIOR TO AE/SAE ONSET: 18/FEB/2021 (211 MG).?ON DAYS 1, 2 AND 3 OF EACH 21?
     Route: 042
     Dates: start: 20201229
  7. AMLODIPINE [Concomitant]
     Active Substance: AMLODIPINE BESYLATE
     Indication: HYPERTENSION
     Route: 048
  8. TRELEGY ELLIPTA [Concomitant]
     Active Substance: FLUTICASONE FUROATE\UMECLIDINIUM BROMIDE\VILANTEROL TRIFENATATE
     Indication: ASTHMA
     Route: 048
  9. DUOTRAV [Concomitant]
     Active Substance: TIMOLOL MALEATE\TRAVOPROST
     Dosage: 1 GTT
     Route: 047
     Dates: start: 20210222
  10. HYDROCORTISONE. [Concomitant]
     Active Substance: HYDROCORTISONE
     Route: 048
  11. HYDROCORTISONE. [Concomitant]
     Active Substance: HYDROCORTISONE
     Indication: PROPHYLAXIS
     Route: 048
  12. MAGNETOP [Concomitant]
     Indication: HYPOMAGNESAEMIA
     Dosage: DRUG DOSE FIRST ADMINISTERED IS 1 OTHER
     Route: 048
     Dates: start: 20210218
  13. SIMBRINZA [Concomitant]
     Active Substance: BRIMONIDINE TARTRATE\BRINZOLAMIDE
     Dosage: 1 GTT
     Route: 047
     Dates: start: 20210222
  14. ALDACTONE [Concomitant]
     Active Substance: SPIRONOLACTONE
     Indication: FLUID OVERLOAD
     Route: 048
     Dates: start: 20210228, end: 20210302
  15. ALDACTONE [Concomitant]
     Active Substance: SPIRONOLACTONE
     Route: 048
     Dates: start: 20210303
  16. BISOPROLOL [Concomitant]
     Active Substance: BISOPROLOL
     Indication: HYPERTENSION
     Route: 048
  17. FLUDROCORTISONE [Concomitant]
     Active Substance: FLUDROCORTISONE
     Indication: PROPHYLAXIS
     Route: 048
  18. PANTOMED (BELGIUM) [Concomitant]
     Active Substance: PANTOPRAZOLE SODIUM
     Indication: GASTRITIS
     Route: 048
     Dates: start: 20210218
  19. ULTRA K [Concomitant]
     Indication: HYPOKALAEMIA
     Route: 048
     Dates: start: 20210218, end: 20210226
  20. CARBOPLATIN. [Suspect]
     Active Substance: CARBOPLATIN
     Indication: SMALL CELL LUNG CANCER EXTENSIVE STAGE
     Dosage: DATE OF MOST RECENT DOSE PRIOR TO AE/SAE ONSET: 16/FEB/2021 (661 MG).
     Route: 042
     Dates: start: 20201229
  21. FRAXIPARINE [Concomitant]
     Active Substance: NADROPARIN CALCIUM
     Route: 058
     Dates: start: 20210220, end: 20210304
  22. DUOVENT [Concomitant]
     Active Substance: FENOTEROL HYDROBROMIDE
     Indication: ASTHMA
     Dosage: 1 PUFF
     Route: 055
  23. FRAXIPARINE [Concomitant]
     Active Substance: NADROPARIN CALCIUM
     Route: 058
     Dates: start: 20210219, end: 20210219

REACTIONS (2)
  - Encephalitis [Fatal]
  - Atrial fibrillation [Not Recovered/Not Resolved]

NARRATIVE: CASE EVENT DATE: 20210219
